FAERS Safety Report 15159370 (Version 4)
Quarter: 2018Q3

REPORT INFORMATION
  Report Type: Report from Study
  Country: DE (occurrence: DE)
  Receive Date: 20180718
  Receipt Date: 20180925
  Transmission Date: 20181010
  Serious: Yes (Hospitalization, Other)
  Sender: FDA-Public Use
  Company Number: DE-MYLANLABS-2018M1051775

PATIENT
  Age: 58 Year
  Sex: Female
  Weight: 37 kg

DRUGS (12)
  1. FLUOROURACIL. [Suspect]
     Active Substance: FLUOROURACIL
     Dosage: 3000 MG/M2, UNK
     Dates: start: 20170621, end: 20170918
  2. ERBITUX [Suspect]
     Active Substance: CETUXIMAB
     Indication: HEAD AND NECK CANCER
     Dosage: DAILY DOSE: 250 MG/M2 MILLIGRAM(S)/SQ. METER EVERY WEEKS
     Route: 042
     Dates: start: 20170705
  3. FLUOROURACIL. [Suspect]
     Active Substance: FLUOROURACIL
     Indication: HEAD AND NECK CANCER
     Dosage: DAILY DOSE: 3000 MG/M2 MILLIGRAM(S)/SQ. METER EVERY 3 WEEKS
     Dates: start: 20170621
  4. CARBOPLATIN. [Suspect]
     Active Substance: CARBOPLATIN
     Dosage: 473 MG, Q3W
     Dates: start: 20170621, end: 20170918
  5. FLUOROURACIL. [Suspect]
     Active Substance: FLUOROURACIL
     Dosage: 2000 MG/M2, UNK
  6. FLUOROURACIL. [Suspect]
     Active Substance: FLUOROURACIL
     Dosage: 3000 MG/M2, Q3W
     Dates: start: 20170621, end: 20170918
  7. CARBOPLATIN. [Suspect]
     Active Substance: CARBOPLATIN
     Dosage: 473 MG, UNK
     Dates: start: 20170621, end: 20170918
  8. FLUOROURACIL. [Suspect]
     Active Substance: FLUOROURACIL
     Dosage: DAILY DOSE: 200 MG/M2 MILLIGRAM(S)/SQ. METER EVERY 3 WEEKS
     Dates: start: 20170720
  9. ERBITUX [Suspect]
     Active Substance: CETUXIMAB
     Dosage: 400 MG/M2
     Route: 042
  10. PARACETAMOL [Concomitant]
     Active Substance: ACETAMINOPHEN
     Indication: PREMEDICATION
     Dosage: UNK
  11. ERBITUX [Suspect]
     Active Substance: CETUXIMAB
     Indication: HEAD AND NECK CANCER
     Dosage: DAILY DOSE: 400 MG/M2 MILLIGRAM(S)/SQ. METER EVERY WEEKS
     Route: 042
     Dates: start: 20170621
  12. CARBOPLATIN. [Suspect]
     Active Substance: CARBOPLATIN
     Indication: HEAD AND NECK CANCER
     Dosage: DAILY DOSE: 473 MG MILLGRAM(S) EVERY 3 WEEKS
     Dates: start: 20170621

REACTIONS (1)
  - Weight decreased [Not Recovered/Not Resolved]

NARRATIVE: CASE EVENT DATE: 20170821
